FAERS Safety Report 6532065-5 (Version None)
Quarter: 2010Q1

REPORT INFORMATION
  Report Type: 
  Country: None (occurrence: None)
  Receive Date: 20100108
  Receipt Date: 20091230
  Transmission Date: 20100710
  Serious: Yes (Other)
  Sender: FDA-Public Use
  Company Number: GXKR2009KR13945

PATIENT
  Age: 62 Year
  Sex: Female

DRUGS (12)
  1. FLUOROURACIL [Suspect]
     Indication: GASTRIC CANCER
     Dosage: 400 MG/M2 BOLUS, ON DAY 1 AND 2, 1 CYCLE
     Route: 065
  2. FLUOROURACIL [Suspect]
     Indication: METASTASES TO LIVER
     Dosage: 1500 MG/M2 CONT, ON DAY 1 AND 2, 1 CYCLE
  3. FLUOROURACIL [Suspect]
     Dosage: DOSE REDUCTION TO 75%, NO BOLUS (SECOND AND THIRD CYCLE)
     Route: 065
  4. FLUOROURACIL [Suspect]
     Dosage: DOSE REDUCTION TO 50%
     Route: 065
  5. LEUCOVORIN CALCIUM [Concomitant]
     Indication: GASTRIC CANCER
     Dosage: 75 MG/M2, ON DAY 1
  6. LEUCOVORIN CALCIUM [Concomitant]
     Indication: METASTASES TO LIVER
  7. OXALIPLATIN [Concomitant]
     Indication: GASTRIC CANCER
     Dosage: 85 MG/M2, ON DAY 1
  8. OXALIPLATIN [Concomitant]
     Indication: METASTASES TO LIVER
  9. LANSOPRAZOLE [Concomitant]
  10. GABAPENTIN [Concomitant]
  11. ITOPRIDE [Concomitant]
  12. ACETYLCYSTEINE [Concomitant]

REACTIONS (9)
  - DIARRHOEA [None]
  - ENCEPHALOPATHY [None]
  - HYPOKINESIA [None]
  - HYPOREFLEXIA [None]
  - MUCOSAL INFLAMMATION [None]
  - NAUSEA [None]
  - NEUTROPENIA [None]
  - SOMNOLENCE [None]
  - VOMITING [None]
